FAERS Safety Report 9355512 (Version 10)
Quarter: 2016Q1

REPORT INFORMATION
  Report Type: Report from Study
  Country: US (occurrence: US)
  Receive Date: 20130619
  Receipt Date: 20160307
  Transmission Date: 20160526
  Serious: Yes (Other)
  Sender: FDA-Public Use
  Company Number: US-SANOFI-AVENTIS-2013SA055130

PATIENT
  Age: 55 Year
  Sex: Female
  Weight: 82.11 kg

DRUGS (23)
  1. EVISTA [Concomitant]
     Active Substance: RALOXIFENE HYDROCHLORIDE
  2. VITAMIN E [Concomitant]
     Active Substance: .ALPHA.-TOCOPHEROL
  3. AUBAGIO [Suspect]
     Active Substance: TERIFLUNOMIDE
     Indication: RELAPSING-REMITTING MULTIPLE SCLEROSIS
     Route: 048
     Dates: start: 20130526
  4. TRAZODONE [Concomitant]
     Active Substance: TRAZODONE HYDROCHLORIDE
  5. SULFASALAZINE. [Concomitant]
     Active Substance: SULFASALAZINE
  6. AUBAGIO [Suspect]
     Active Substance: TERIFLUNOMIDE
     Indication: RELAPSING-REMITTING MULTIPLE SCLEROSIS
     Route: 048
     Dates: start: 20130526
  7. AUBAGIO [Suspect]
     Active Substance: TERIFLUNOMIDE
     Indication: RELAPSING-REMITTING MULTIPLE SCLEROSIS
     Route: 048
     Dates: start: 20130605
  8. AUBAGIO [Suspect]
     Active Substance: TERIFLUNOMIDE
     Indication: RELAPSING-REMITTING MULTIPLE SCLEROSIS
     Route: 048
     Dates: start: 20130526
  9. NEXIUM [Concomitant]
     Active Substance: ESOMEPRAZOLE MAGNESIUM
  10. SYNTHROID [Concomitant]
     Active Substance: LEVOTHYROXINE SODIUM
  11. VITAMIN D [Concomitant]
     Active Substance: CHOLECALCIFEROL
     Dosage: 1 MONTHLY
  12. ULTRAM [Concomitant]
     Active Substance: TRAMADOL HYDROCHLORIDE
  13. VITAMIN B [Concomitant]
     Active Substance: VITAMIN B
  14. COLACE [Concomitant]
     Active Substance: DOCUSATE SODIUM
  15. REBIF [Concomitant]
     Active Substance: INTERFERON BETA-1A
     Indication: MULTIPLE SCLEROSIS
     Dates: start: 20070701, end: 20130510
  16. AUBAGIO [Suspect]
     Active Substance: TERIFLUNOMIDE
     Indication: RELAPSING-REMITTING MULTIPLE SCLEROSIS
     Route: 048
     Dates: start: 20130605
  17. BACLOFEN. [Concomitant]
     Active Substance: BACLOFEN
  18. PLAQUENIL [Concomitant]
     Active Substance: HYDROXYCHLOROQUINE SULFATE
  19. CELEXA [Concomitant]
     Active Substance: CITALOPRAM HYDROBROMIDE
  20. DEMADEX [Concomitant]
     Active Substance: TORSEMIDE
  21. METHOTREXATE [Concomitant]
     Active Substance: METHOTREXATE
  22. AUBAGIO [Suspect]
     Active Substance: TERIFLUNOMIDE
     Indication: RELAPSING-REMITTING MULTIPLE SCLEROSIS
     Route: 048
     Dates: start: 20130605
  23. ADDERALL [Concomitant]
     Active Substance: AMPHETAMINE ASPARTATE\AMPHETAMINE SULFATE\DEXTROAMPHETAMINE SACCHARATE\DEXTROAMPHETAMINE SULFATE

REACTIONS (23)
  - Optic neuritis [Recovered/Resolved]
  - Abdominal distension [Unknown]
  - Neuropathy peripheral [Not Recovered/Not Resolved]
  - Pain [Not Recovered/Not Resolved]
  - Rheumatoid arthritis [Unknown]
  - Ear infection [Recovered/Resolved]
  - Nasopharyngitis [Not Recovered/Not Resolved]
  - Ataxia [Recovering/Resolving]
  - Myalgia [Unknown]
  - Joint swelling [Unknown]
  - Arthralgia [Unknown]
  - Nasal congestion [Recovered/Resolved]
  - Sinusitis [Not Recovered/Not Resolved]
  - Headache [Recovered/Resolved]
  - Unevaluable event [Unknown]
  - Bronchitis [Not Recovered/Not Resolved]
  - Hypoaesthesia [Unknown]
  - Antinuclear antibody positive [Unknown]
  - Memory impairment [Unknown]
  - Multiple sclerosis [Unknown]
  - Head discomfort [Recovered/Resolved]
  - Weight increased [Unknown]
  - Peroneal nerve palsy [Unknown]

NARRATIVE: CASE EVENT DATE: 20130527
